FAERS Safety Report 8726408 (Version 2)
Quarter: 2012Q4

REPORT INFORMATION
  Report Type: Spontaneous
  Country: US (occurrence: None)
  Receive Date: 20120730
  Receipt Date: 20120822
  Transmission Date: 20130627
  Serious: Yes (Hospitalization, Other)
  Sender: FDA-Public Use
  Company Number: 2012P1049660

PATIENT
  Age: 52 Year
  Sex: Female
  Weight: 74.84 kg

DRUGS (2)
  1. FENTANYL [Suspect]
     Indication: BACK PAIN
     Dosage: ; TDER
     Route: 062
     Dates: start: 201110, end: 20111015
  2. FENTANYL [Suspect]
     Indication: BACK PAIN
     Dosage: ; TDER
     Route: 062
     Dates: start: 20120716, end: 20120716

REACTIONS (12)
  - Atrioventricular block [None]
  - Aortic dilatation [None]
  - Left ventricular hypertrophy [None]
  - Diastolic dysfunction [None]
  - Mitral valve incompetence [None]
  - Aortic valve incompetence [None]
  - Pulmonary valve incompetence [None]
  - Tricuspid valve incompetence [None]
  - Aspartate aminotransferase increased [None]
  - Alanine aminotransferase increased [None]
  - Blood cholesterol increased [None]
  - Low density lipoprotein increased [None]
